FAERS Safety Report 10341714 (Version 1)
Quarter: 2014Q3

REPORT INFORMATION
  Report Type: Spontaneous
  Country: US (occurrence: None)
  Receive Date: 20140723
  Receipt Date: 20140723
  Transmission Date: 20150326
  Serious: Yes (Hospitalization)
  Sender: FDA-Public Use
  Company Number: UNT-2014-003862

PATIENT
  Age: 60 Year
  Sex: Male
  Weight: 80.3 kg

DRUGS (2)
  1. REMODULIN [Suspect]
     Active Substance: TREPROSTINIL
     Indication: PULMONARY ARTERIAL HYPERTENSION
     Route: 058
     Dates: start: 20140507
  2. REVATIO (SILDENAFIL CITRATE) [Concomitant]

REACTIONS (1)
  - Fluid overload [None]
